FAERS Safety Report 6138781-1 (Version None)
Quarter: 2009Q1

REPORT INFORMATION
  Report Type: 
  Country: None (occurrence: None)
  Receive Date: 20090331
  Receipt Date: 20090320
  Transmission Date: 20090719
  Serious: Yes (Other)
  Sender: FDA-Public Use
  Company Number: US-TYCO HEALTHCARE/MALLINCKRODT-T200801924

PATIENT
  Age: 46 Year
  Sex: Female

DRUGS (14)
  1. OPTIMARK [Suspect]
     Indication: NUCLEAR MAGNETIC RESONANCE IMAGING
     Dosage: UNK
     Dates: start: 20041005, end: 20041005
  2. OMNISCAN [Suspect]
     Indication: NUCLEAR MAGNETIC RESONANCE IMAGING ABDOMINAL
     Dosage: UNK
     Dates: start: 20031202, end: 20031202
  3. GADOLINIUM [Suspect]
     Indication: NUCLEAR MAGNETIC RESONANCE IMAGING
     Dosage: UNK
     Dates: start: 20060829, end: 20060829
  4. WARFARIN SODIUM [Concomitant]
     Dosage: 3 MG, QD
  5. PREDNISONE [Concomitant]
     Dosage: 5 MG, QOD
  6. FLORINEF [Concomitant]
     Dosage: 0.1 MG, BID
  7. ROCALTROL [Concomitant]
     Dosage: 0.5 UG, QD
  8. PERCOCET [Concomitant]
     Dosage: 1-2 DAILY, PRN
  9. ATIVAN [Concomitant]
     Dosage: 2 MG, BID
  10. TUMS                               /00108001/ [Concomitant]
     Dosage: 2 TABS, QD
  11. ZANTAC                             /00550802/ [Concomitant]
     Dosage: 150 MG, QD (HS)
  12. ZYRTEC [Concomitant]
     Dosage: 10 MG, QD PRN
  13. OXYCONTIN [Concomitant]
     Dosage: 40 MG, BID
  14. COLACE [Concomitant]

REACTIONS (1)
  - NEPHROGENIC SYSTEMIC FIBROSIS [None]
